FAERS Safety Report 19720479 (Version 1)
Quarter: 2021Q3

REPORT INFORMATION
  Report Type: Spontaneous
  Country: IN (occurrence: IN)
  Receive Date: 20210818
  Receipt Date: 20210818
  Transmission Date: 20211014
  Serious: Yes (Death)
  Sender: FDA-Public Use
  Company Number: IN-PFIZER INC-2020229664

PATIENT
  Age: 87 Year
  Sex: Female

DRUGS (9)
  1. X?TANE [Concomitant]
     Dosage: 25 MG, 1X/DAY
     Route: 048
     Dates: start: 202003
  2. PALBACE [Suspect]
     Active Substance: PALBOCICLIB
     Dosage: 125 MG, 1X/DAY
     Route: 048
     Dates: start: 20210110
  3. CCM [Concomitant]
     Dosage: UNK, 1X/DAY
  4. CALCIROL [COLECALCIFEROL] [Concomitant]
     Dosage: 60 K ONCE IN 2 WEEKS
  5. PALBACE [Suspect]
     Active Substance: PALBOCICLIB
     Indication: BREAST CANCER METASTATIC
     Dosage: UNK
     Route: 048
  6. PALBACE [Suspect]
     Active Substance: PALBOCICLIB
     Dosage: 75 MG, CYCLIC (ONCE DAILY, 21 DAYS ON 7 DAYS OFF)
     Route: 048
     Dates: start: 20200610
  7. ULTRACET [Concomitant]
     Active Substance: ACETAMINOPHEN\TRAMADOL HYDROCHLORIDE
     Dosage: UNK, 1X/DAY
  8. LETROZOLE. [Concomitant]
     Active Substance: LETROZOLE
     Dosage: UNK
  9. FULVESTRANT. [Concomitant]
     Active Substance: FULVESTRANT
     Dosage: 250 MG
     Route: 030

REACTIONS (2)
  - Organ failure [Fatal]
  - Musculoskeletal disorder [Unknown]
